FAERS Safety Report 5917086-5 (Version None)
Quarter: 2008Q4

REPORT INFORMATION
  Report Type: 
  Country: None (occurrence: None)
  Receive Date: 20081010
  Receipt Date: 20081010
  Transmission Date: 20090506
  Serious: No
  Sender: FDA-Public Use
  Company Number: None

PATIENT
  Age: 58 Year
  Sex: Female
  Weight: 49.8957 kg

DRUGS (2)
  1. ACTONEL [Suspect]
     Indication: OSTEOPOROSIS
     Dosage: WEEKLY
     Dates: start: 20040301
  2. ACTONEL [Suspect]
     Indication: OSTEOPOROSIS
     Dosage: WEEKLY
     Dates: start: 20050301

REACTIONS (1)
  - TOOTH LOSS [None]
